FAERS Safety Report 8584553-8 (Version None)
Quarter: 2012Q3

REPORT INFORMATION
  Report Type: 
  Country: None (occurrence: None)
  Receive Date: 20120730
  Receipt Date: 20120713
  Transmission Date: 20120928
  Serious: Yes (Hospitalization, Other)
  Sender: FDA-Public Use
  Company Number: TPA2012A01155

PATIENT
  Age: 78 Year
  Sex: Male
  Weight: 73.4827 kg

DRUGS (10)
  1. MELOXICAM [Concomitant]
  2. SIMVASTATIN [Concomitant]
  3. FLUTICASONE PROPIONATE [Concomitant]
  4. LISINOPRIL [Concomitant]
  5. PANTOPRAZOLE SODIUM [Concomitant]
  6. PROTONIX [Concomitant]
  7. IBUPROFEN [Concomitant]
  8. CADUET [Concomitant]
  9. ACTOS [Suspect]
     Indication: TYPE 2 DIABETES MELLITUS
     Dosage: 30 MG, 1 IN 1 D;
     Dates: start: 20090527, end: 20111114
  10. NASONEX [Concomitant]

REACTIONS (8)
  - ACUTE PRERENAL FAILURE [None]
  - URINARY TRACT INFECTION [None]
  - PROSTATE CANCER [None]
  - NAUSEA [None]
  - ASTHENIA [None]
  - VOMITING [None]
  - BLADDER TRANSITIONAL CELL CARCINOMA [None]
  - DEHYDRATION [None]
